FAERS Safety Report 7304654-1 (Version None)
Quarter: 2011Q1

REPORT INFORMATION
  Report Type: 
  Country: None (occurrence: None)
  Receive Date: 20110222
  Receipt Date: 20110209
  Transmission Date: 20110831
  Serious: Yes (Death, Life-Threatening)
  Sender: FDA-Public Use
  Company Number: JP-BAYER-200913635BYL

PATIENT
  Sex: Male
  Weight: 58 kg

DRUGS (20)
  1. ALBUMINAR [Concomitant]
     Route: 042
     Dates: start: 20090925, end: 20090927
  2. DUROTEP [Concomitant]
     Dosage: 2.1 MG (DAILY DOSE), , TRANSDERMAL
     Route: 062
     Dates: start: 20091001, end: 20091008
  3. NEXAVAR [Suspect]
     Route: 048
     Dates: start: 20091001, end: 20091003
  4. DIURETICS [Suspect]
     Indication: PRODUCT USED FOR UNKNOWN INDICATION
     Route: 065
  5. PLATELETS [Concomitant]
     Dosage: 10 U (DAILY DOSE), , INTRAVENOUS
     Route: 042
     Dates: start: 20091002, end: 20091002
  6. OXYCONTIN [Concomitant]
     Route: 048
     Dates: start: 20090915, end: 20091001
  7. AMLODIPINE [Concomitant]
     Dosage: BEFORE NEXAVAR ADMINISTRATION
     Route: 048
     Dates: end: 20091001
  8. TAKEPRON [Concomitant]
     Indication: DUODENAL ULCER
     Dosage: BEFORE NEXAVAR ADMINISTRATION
     Route: 048
     Dates: end: 20091003
  9. LASIX [Concomitant]
     Dosage: 20 MG (DAILY DOSE), , ORAL
     Route: 048
     Dates: start: 20090828, end: 20090930
  10. SLOVASTAN [Suspect]
     Indication: ARTERIAL THROMBOSIS LIMB
     Dosage: 10 U (DAILY DOSE), , INTRAVENOUS
     Route: 042
     Dates: start: 20091003, end: 20091005
  11. OXYCONTIN [Concomitant]
     Indication: ABDOMINAL PAIN
     Dosage: BEFORE NEXAVAR ADMINISTRATION
     Route: 048
  12. FRESH FROZEN PLASMA [Concomitant]
     Indication: DISSEMINATED INTRAVASCULAR COAGULATION
     Dosage: 3 U (DAILY DOSE), , INTRAVENOUS
     Route: 042
     Dates: start: 20091005
  13. LIVACT [Concomitant]
     Dosage: BEFORE NEXAVAR ADMINISTRATION
     Route: 048
     Dates: end: 20091003
  14. OXYCONTIN [Concomitant]
     Route: 048
     Dates: start: 20090828
  15. SANDOSTATIN [Concomitant]
     Indication: ILEUS
     Dosage: 300 ?G (DAILY DOSE), , INTRAVENOUS
     Route: 042
     Dates: start: 20090922, end: 20090929
  16. MOBIC [Concomitant]
     Dosage: BEFORE NEXAVAR ADMINISTRATION
     Route: 048
     Dates: end: 20090930
  17. NEXAVAR [Suspect]
     Indication: HEPATIC NEOPLASM MALIGNANT
     Route: 048
     Dates: start: 20090824, end: 20090930
  18. SPIRONOLACTONE [Concomitant]
     Dosage: BEFORE NEXAVAR ADMINISTRATION
     Route: 048
     Dates: end: 20091003
  19. HALCION [Concomitant]
     Dosage: BEFORE NEXAVAR ADMINISTRATION
     Route: 048
     Dates: end: 20091003
  20. FALKAMIN [Concomitant]
     Dosage: 3 DF, UNK
     Route: 048
     Dates: start: 20091003

REACTIONS (9)
  - HYPONATRAEMIA [None]
  - ALTERED STATE OF CONSCIOUSNESS [None]
  - RHABDOMYOLYSIS [None]
  - RENAL IMPAIRMENT [None]
  - HEPATIC NEOPLASM MALIGNANT [None]
  - HEPATIC FUNCTION ABNORMAL [None]
  - RASH [None]
  - BLOOD CREATINE PHOSPHOKINASE INCREASED [None]
  - ARTERIAL THROMBOSIS LIMB [None]
